FAERS Safety Report 24099023 (Version 1)
Quarter: 2024Q3

REPORT INFORMATION
  Report Type: Spontaneous
  Country: US (occurrence: US)
  Receive Date: 20240716
  Receipt Date: 20240716
  Transmission Date: 20241016
  Serious: No
  Sender: NOVO NORDISK
  Company Number: US-NOVOPROD-1166336

PATIENT
  Age: 84 Year
  Sex: Female

DRUGS (1)
  1. OZEMPIC [Suspect]
     Active Substance: SEMAGLUTIDE
     Indication: Product used for unknown indication
     Dosage: 0.50 MG, QW
     Route: 058
     Dates: start: 20231114, end: 20240116

REACTIONS (2)
  - Insomnia [Recovered/Resolved]
  - Abdominal discomfort [Recovered/Resolved]

NARRATIVE: CASE EVENT DATE: 20231101
